FAERS Safety Report 14030805 (Version 2)
Quarter: 2018Q2

REPORT INFORMATION
  Report Type: Spontaneous
  Country: NL (occurrence: NL)
  Receive Date: 20171002
  Receipt Date: 20180410
  Transmission Date: 20180711
  Serious: Yes (Hospitalization)
  Sender: FDA-Public Use
  Company Number: PHHY2017NL142300

PATIENT
  Age: 13 Year
  Sex: Male

DRUGS (1)
  1. METHYLPHENIDATE. [Suspect]
     Active Substance: METHYLPHENIDATE
     Indication: PRODUCT USED FOR UNKNOWN INDICATION
     Dosage: 3.5 MG/KG, UNK
     Route: 048

REACTIONS (5)
  - Tachycardia [Unknown]
  - Toxicity to various agents [Unknown]
  - Hypertension [Unknown]
  - Electrocardiogram abnormal [Unknown]
  - Tachypnoea [Unknown]
